FAERS Safety Report 5479421-4 (Version None)
Quarter: 2007Q4

REPORT INFORMATION
  Report Type: 
  Country: None (occurrence: None)
  Receive Date: 20071003
  Receipt Date: 20071003
  Transmission Date: 20080405
  Serious: No
  Sender: FDA-Public Use
  Company Number: None

PATIENT
  Age: 43 Year
  Sex: Male
  Weight: 81.1939 kg

DRUGS (2)
  1. FLUCONAZOLE [Suspect]
     Indication: OESOPHAGEAL CANDIDIASIS
     Dosage: 100MG EVERY DAY PO
     Route: 048
     Dates: start: 20070103, end: 20070406
  2. LOPINAVIR AND RITONAVIR [Suspect]
     Indication: HIV INFECTION
     Dosage: 400/100MG BID PO
     Route: 048
     Dates: start: 20070118, end: 20070406

REACTIONS (1)
  - HEPATIC ENZYME INCREASED [None]
